FAERS Safety Report 10156471 (Version 2)
Quarter: 2014Q2

REPORT INFORMATION
  Report Type: Report from Study
  Country: BR (occurrence: BR)
  Receive Date: 20140507
  Receipt Date: 20140507
  Transmission Date: 20141212
  Serious: Yes (Hospitalization, Other)
  Sender: FDA-Public Use
  Company Number: BR-ROCHE-1361606

PATIENT
  Age: 24 Year
  Sex: Female
  Weight: 43 kg

DRUGS (7)
  1. ACTEMRA [Suspect]
     Indication: RHEUMATOID ARTHRITIS
     Route: 042
     Dates: start: 20140121
  2. FLANCOX [Concomitant]
     Indication: RHEUMATOID ARTHRITIS
  3. ENDOFOLIN [Concomitant]
     Indication: RHEUMATOID ARTHRITIS
     Route: 065
  4. PRELONE [Concomitant]
     Indication: RHEUMATOID ARTHRITIS
     Route: 065
  5. METHOTREXATE [Concomitant]
     Indication: RHEUMATOID ARTHRITIS
  6. FOLIC ACID [Concomitant]
     Indication: RHEUMATOID ARTHRITIS
  7. PREDNISONE [Concomitant]

REACTIONS (4)
  - Food poisoning [Unknown]
  - Rheumatoid arthritis [Unknown]
  - Aphagia [Not Recovered/Not Resolved]
  - Nausea [Not Recovered/Not Resolved]
